FAERS Safety Report 4312861-5 (Version None)
Quarter: 2004Q1

REPORT INFORMATION
  Report Type: 
  Country: None (occurrence: None)
  Receive Date: 20040304
  Receipt Date: 20040223
  Transmission Date: 20041129
  Serious: Yes (Hospitalization)
  Sender: FDA-Public Use
  Company Number: 04P-056-0251559-00

PATIENT
  Age: 52 Year
  Sex: Female

DRUGS (5)
  1. ISOPTIN [Suspect]
     Indication: DRUG USE FOR UNKNOWN INDICATION
     Dosage: 1 DOSAGE FORMS, 1 IN 1 D, PER ORAL
     Route: 048
     Dates: start: 20040108, end: 20040119
  2. ALPRAZOLAM [Suspect]
     Indication: DRUG USE FOR UNKNOWN INDICATION
     Dosage: 1.5 DOSAGE FORMS, PER ORAL
     Route: 048
     Dates: start: 20030101
  3. DIOSMIN [Suspect]
     Indication: DRUG USE FOR UNKNOWN INDICATION
     Dosage: 2 DOSAGE FORMS, PER ORAL
     Route: 048
     Dates: start: 20010101
  4. LISINOPRIL [Suspect]
     Indication: DRUG USE FOR UNKNOWN INDICATION
     Dosage: 1 DOSAGE FORMS, PER ORAL
     Route: 048
     Dates: start: 20010101
  5. PAROXETINE HCL [Suspect]
     Indication: DRUG USE FOR UNKNOWN INDICATION
     Dosage: 1 DOSAGE FORMS, PER ORAL
     Route: 048
     Dates: start: 20020101

REACTIONS (2)
  - PRURITUS [None]
  - TOXIC SKIN ERUPTION [None]
